FAERS Safety Report 15900193 (Version 3)
Quarter: 2019Q3

REPORT INFORMATION
  Report Type: Spontaneous
  Country: US (occurrence: US)
  Receive Date: 20190201
  Receipt Date: 20190710
  Transmission Date: 20191004
  Serious: Yes (Hospitalization, Other)
  Sender: FDA-Public Use
  Company Number: US-PFIZER INC-2019044770

PATIENT
  Age: 73 Year
  Sex: Female

DRUGS (17)
  1. NEXIUM [Concomitant]
     Active Substance: ESOMEPRAZOLE MAGNESIUM
     Dosage: 40 MG, AS NEEDED
  2. VITAMIN B12 [Concomitant]
     Active Substance: CYANOCOBALAMIN
     Dosage: 2500 MG, 2X/WEEK
  3. CALCIUM +D3 [Concomitant]
     Active Substance: CALCIUM\CHOLECALCIFEROL
     Dosage: DAILY (CALCIUM: 600 MG + D)
  4. VITAMIN D3 [Concomitant]
     Active Substance: CHOLECALCIFEROL
     Dosage: 2000 IU, DAILY
  5. PRAVASTATIN. [Concomitant]
     Active Substance: PRAVASTATIN
     Dosage: 20 MG, DAILY
  6. VITAMIN A [RETINOL] [Concomitant]
     Active Substance: RETINOL
     Dosage: 2400 UG, DAILY
  7. ASPIRIN (E.C.) [Concomitant]
     Active Substance: ASPIRIN
     Dosage: 81 MG, DAILY
  8. BREO ELLIPTA [Concomitant]
     Active Substance: FLUTICASONE FUROATE\VILANTEROL TRIFENATATE
     Dosage: DAILY [FLUTICASONE FUROATE 100 MCG]-[VILANTEROL TRIFENATATE 25 MCG]
  9. FUROSEMIDE. [Concomitant]
     Active Substance: FUROSEMIDE
     Dosage: 10 MG, DAILY
  10. MULTIVITAMINUM-ADULT 50 [Concomitant]
     Dosage: UNK UNK, DAILY
  11. XELJANZ XR [Suspect]
     Active Substance: TOFACITINIB CITRATE
     Dosage: 11 MG, UNK
     Dates: start: 20180301
  12. TOPROL XL [Concomitant]
     Active Substance: METOPROLOL SUCCINATE
     Dosage: 50 MG, DAILY
  13. FOLIC ACID. [Concomitant]
     Active Substance: FOLIC ACID
     Dosage: 1 MG, DAILY
  14. VITAMIN C [Concomitant]
     Active Substance: ASCORBIC ACID
     Dosage: 1000 MG, DAILY
  15. XELJANZ XR [Suspect]
     Active Substance: TOFACITINIB CITRATE
     Dosage: 11 MG, DAILY (MORNING)
     Dates: start: 201802, end: 20190125
  16. NASONEX [Concomitant]
     Active Substance: MOMETASONE FUROATE
     Dosage: 40 MG, AS NEEDED
  17. PREDNISONE. [Concomitant]
     Active Substance: PREDNISONE
     Indication: RHEUMATOID ARTHRITIS
     Dosage: 2.5 MG, AS NEEDED

REACTIONS (4)
  - Pneumonia [Unknown]
  - Pulmonary oedema [Unknown]
  - Cardiac failure congestive [Unknown]
  - Pericardial cyst [Unknown]

NARRATIVE: CASE EVENT DATE: 20190123
